FAERS Safety Report 7042956-7 (Version None)
Quarter: 2010Q4

REPORT INFORMATION
  Report Type: 
  Country: None (occurrence: None)
  Receive Date: 20101013
  Receipt Date: 20101012
  Transmission Date: 20110411
  Serious: Yes (Hospitalization)
  Sender: FDA-Public Use
  Company Number: US-BRISTOL-MYERS SQUIBB COMPANY-15329279

PATIENT
  Age: 82 Year
  Sex: Male

DRUGS (5)
  1. COUMADIN [Suspect]
     Dosage: INTERRUPTED:10OCT10
  2. LISINOPRIL [Concomitant]
  3. METOPROLOL [Concomitant]
  4. ZOCOR [Concomitant]
  5. XANAX [Concomitant]

REACTIONS (2)
  - INTERNATIONAL NORMALISED RATIO INCREASED [None]
  - NEUROPATHY PERIPHERAL [None]
